FAERS Safety Report 22207977 (Version 3)
Quarter: 2023Q2

REPORT INFORMATION
  Report Type: Report from Study
  Country: US (occurrence: US)
  Receive Date: 20230413
  Receipt Date: 20230531
  Transmission Date: 20230722
  Serious: Yes (Other)
  Sender: FDA-Public Use
  Company Number: US-UCBSA-2023006702

PATIENT
  Age: 59 Year
  Sex: Female
  Weight: 132 kg

DRUGS (2)
  1. CERTOLIZUMAB PEGOL [Suspect]
     Active Substance: CERTOLIZUMAB PEGOL
     Indication: Ankylosing spondylitis
     Dosage: 400 MILLIGRAM (2X200 MG/ML) AT WEEKS 0, 2,4 SUBQ
     Dates: start: 20221004
  2. CERTOLIZUMAB PEGOL [Suspect]
     Active Substance: CERTOLIZUMAB PEGOL
     Dosage: 400 MILLIGRAM,(2 X200 MG/ML)2 INJECTIONS EVERY 4 WEEKS
     Dates: start: 20230110, end: 20230401

REACTIONS (5)
  - Tuberculosis [Unknown]
  - Cardiovascular disorder [Recovered/Resolved]
  - COVID-19 [Not Recovered/Not Resolved]
  - Drug ineffective [Unknown]
  - Therapy cessation [Unknown]

NARRATIVE: CASE EVENT DATE: 20221006
